FAERS Safety Report 10768060 (Version 1)
Quarter: 2015Q1

REPORT INFORMATION
  Report Type: Spontaneous
  Country: US (occurrence: US)
  Receive Date: 20150205
  Receipt Date: 20150205
  Transmission Date: 20150721
  Serious: Yes (Other)
  Sender: FDA-Public Use
  Company Number: US-ABBVIE-15K-163-1339813-00

PATIENT
  Age: 25 Year

DRUGS (4)
  1. CIMZIA [Concomitant]
     Active Substance: CERTOLIZUMAB PEGOL
     Indication: PRODUCT USED FOR UNKNOWN INDICATION
  2. HUMIRA [Suspect]
     Active Substance: ADALIMUMAB
     Indication: PRODUCT USED FOR UNKNOWN INDICATION
     Route: 065
  3. ENTEROCORT [Concomitant]
     Indication: PRODUCT USED FOR UNKNOWN INDICATION
  4. PRED [Concomitant]
     Active Substance: PREDNISONE
     Indication: PRODUCT USED FOR UNKNOWN INDICATION

REACTIONS (4)
  - Activities of daily living impaired [Unknown]
  - Intestinal resection [Unknown]
  - Abdominal pain upper [Unknown]
  - Surgical failure [Unknown]

NARRATIVE: CASE EVENT DATE: 2013
